FAERS Safety Report 8973769 (Version 1)
Quarter: 2012Q4

REPORT INFORMATION
  Report Type: 
  Country: US (occurrence: US)
  Receive Date: 20121218
  Receipt Date: 20121218
  Transmission Date: 20130627
  Serious: No
  Sender: FDA-Public Use
  Company Number: US-BRISTOL-MYERS SQUIBB COMPANY-16410672

PATIENT
  Age: 19 Year
  Sex: Male
  Weight: 65 kg

DRUGS (2)
  1. ABILIFY [Suspect]
     Indication: BIPOLAR DISORDER
  2. KLONOPIN [Concomitant]
     Indication: ANXIETY

REACTIONS (5)
  - Confusional state [Not Recovered/Not Resolved]
  - Pollakiuria [Not Recovered/Not Resolved]
  - Migraine [Not Recovered/Not Resolved]
  - Restlessness [Not Recovered/Not Resolved]
  - Insomnia [Not Recovered/Not Resolved]
